FAERS Safety Report 23682741 (Version 1)
Quarter: 2024Q1

REPORT INFORMATION
  Report Type: Report from Study
  Country: CA (occurrence: CA)
  Receive Date: 20240328
  Receipt Date: 20240328
  Transmission Date: 20240409
  Serious: Yes (Hospitalization, Other)
  Sender: FDA-Public Use
  Company Number: CA-JNJFOC-20230449168

PATIENT
  Age: 25 Year
  Sex: Male

DRUGS (5)
  1. STELARA [Suspect]
     Active Substance: USTEKINUMAB
     Indication: Crohn^s disease
     Route: 040
     Dates: start: 20230313
  2. STELARA [Suspect]
     Active Substance: USTEKINUMAB
     Route: 040
     Dates: start: 2023
  3. STELARA [Suspect]
     Active Substance: USTEKINUMAB
     Dosage: IV RELOAD THEN EVERY 8 WEEKS OR 12 WEEKS
     Route: 040
     Dates: start: 2023
  4. STELARA [Suspect]
     Active Substance: USTEKINUMAB
     Indication: Crohn^s disease
     Route: 058
  5. STELARA [Suspect]
     Active Substance: USTEKINUMAB
     Route: 058

REACTIONS (19)
  - Pyoderma gangrenosum [Unknown]
  - Abdominal infection [Unknown]
  - Intestinal resection [Unknown]
  - Gastrointestinal procedural complication [Unknown]
  - Life support [Recovering/Resolving]
  - Anastomotic leak [Not Recovered/Not Resolved]
  - Mineral supplementation [Unknown]
  - Sepsis [Unknown]
  - Appendicitis [Unknown]
  - Asthenia [Not Recovered/Not Resolved]
  - Crohn^s disease [Unknown]
  - Perirectal abscess [Unknown]
  - Post procedural complication [Unknown]
  - Weight decreased [Unknown]
  - Hypersomnia [Unknown]
  - Gait disturbance [Unknown]
  - Transfusion reaction [Unknown]
  - Vomiting [Not Recovered/Not Resolved]
  - Off label use [Unknown]

NARRATIVE: CASE EVENT DATE: 20230101
